FAERS Safety Report 19645298 (Version 3)
Quarter: 2021Q3

REPORT INFORMATION
  Report Type: Spontaneous
  Country: US (occurrence: US)
  Receive Date: 20210802
  Receipt Date: 20210827
  Transmission Date: 20211014
  Serious: Yes (Hospitalization)
  Sender: FDA-Public Use
  Company Number: US-BEH-2021134241

PATIENT
  Age: 22 Year
  Sex: Female
  Weight: 48 kg

DRUGS (2)
  1. PRIVIGEN [Suspect]
     Active Substance: HUMAN IMMUNOGLOBULIN G
     Indication: IMMUNODEFICIENCY
     Dosage: 55 GRAM, QOW
     Route: 042
     Dates: start: 201803
  2. PRIVIGEN [Suspect]
     Active Substance: HUMAN IMMUNOGLOBULIN G
     Indication: CYTOPENIA
     Dosage: 1 GM/KG
     Route: 042

REACTIONS (6)
  - Chest pain [Unknown]
  - Blood pressure abnormal [Unknown]
  - Haemolytic anaemia [Recovered/Resolved]
  - Rhinovirus infection [Recovered/Resolved]
  - Malaise [Unknown]
  - Dyspnoea [Unknown]

NARRATIVE: CASE EVENT DATE: 20210709
